FAERS Safety Report 7544411-4 (Version None)
Quarter: 2011Q2

REPORT INFORMATION
  Report Type: 
  Country: None (occurrence: None)
  Receive Date: 20110613
  Receipt Date: 20080925
  Transmission Date: 20111010
  Serious: Yes (Death)
  Sender: FDA-Public Use
  Company Number: PHHY2008AU14675

PATIENT
  Sex: Male

DRUGS (13)
  1. CYPROTERONE [Concomitant]
     Dosage: 50 MG, BD
     Route: 048
  2. PHENOTHIAZINE [Concomitant]
     Dosage: UNK
  3. CLOZAPINE [Suspect]
     Dosage: UNK
     Route: 048
     Dates: start: 20070820
  4. FERROUS SULFATE TAB [Concomitant]
     Dosage: 325 MG, UNK
     Route: 048
  5. CLOZAPINE [Suspect]
     Dosage: UNK
     Route: 048
  6. OLANZAPINE [Concomitant]
     Dosage: 10 MG, BD
     Route: 048
     Dates: start: 20070101
  7. METFORMIN HCL [Concomitant]
     Indication: DIABETES MELLITUS
     Dosage: 500 MG, TDS
     Route: 048
  8. THIAMINE [Concomitant]
     Dosage: 100 MG, UNK
     Route: 048
  9. TRICYCLIC ANTIDEPRESSANTS [Concomitant]
     Dosage: UNK
  10. IRBESARTAN [Concomitant]
     Dosage: 150 MG, MANE
     Route: 048
  11. ANTIHISTAMINES [Concomitant]
     Dosage: UNK
  12. CLOZAPINE [Suspect]
     Indication: SCHIZOPHRENIA
     Dosage: UNK
     Route: 048
     Dates: start: 19951016, end: 20061022
  13. OMEPRAZOLE [Concomitant]
     Dosage: 40 MG, MANE
     Route: 048

REACTIONS (1)
  - DEATH [None]
